FAERS Safety Report 18831148 (Version 7)
Quarter: 2021Q4

REPORT INFORMATION
  Report Type: Report from Study
  Country: US (occurrence: US)
  Receive Date: 20210203
  Receipt Date: 20211004
  Transmission Date: 20220304
  Serious: No
  Sender: FDA-Public Use
  Company Number: NVSC2021US025303

PATIENT
  Sex: Male

DRUGS (2)
  1. COSENTYX [Suspect]
     Active Substance: SECUKINUMAB
     Indication: Psoriasis
     Dosage: 300 MG, QW(Q WEEKLY X 5 WEEKS THEN Q 4 WEEKS)
     Route: 058
  2. COSENTYX [Suspect]
     Active Substance: SECUKINUMAB
     Indication: Psoriasis

REACTIONS (4)
  - Fatigue [Not Recovered/Not Resolved]
  - Injection site bruising [Recovering/Resolving]
  - Skin plaque [Not Recovered/Not Resolved]
  - Drug ineffective [Not Recovered/Not Resolved]
